FAERS Safety Report 6936956-2 (Version None)
Quarter: 2010Q3

REPORT INFORMATION
  Report Type: 
  Country: None (occurrence: None)
  Receive Date: 20100818
  Receipt Date: 20100805
  Transmission Date: 20110219
  Serious: Yes (Other)
  Sender: FDA-Public Use
  Company Number: CL-198-2010

PATIENT
  Age: 16 Year
  Sex: Female
  Weight: 48 kg

DRUGS (12)
  1. ONDANSETRON [Suspect]
     Indication: PROCEDURAL VOMITING
     Dosage: 8 HOURLY
  2. HEPARIN [Concomitant]
     Indication: PROCEDURAL NAUSEA
  3. MILRINONE [Concomitant]
  4. NORADRENALINE [Concomitant]
  5. ACETAMINOPHEN [Concomitant]
  6. SPIRONOLACTONE [Concomitant]
  7. CEFUROXIME [Concomitant]
  8. DOPAMINE HCL [Concomitant]
  9. ENALAPRIL MALEATE [Concomitant]
  10. FENTANYL CITRATE [Concomitant]
  11. WARFARIN SODIUM [Concomitant]
  12. FUROSEMIDE [Concomitant]

REACTIONS (1)
  - DRUG INEFFECTIVE [None]
